FAERS Safety Report 6417195-0 (Version None)
Quarter: 2009Q4

REPORT INFORMATION
  Report Type: 
  Country: None (occurrence: None)
  Receive Date: 20091028
  Receipt Date: 20091019
  Transmission Date: 20100525
  Serious: Yes (Other)
  Sender: FDA-Public Use
  Company Number: US-JNJFOC-20091006273

PATIENT
  Age: 10 Year
  Sex: Male

DRUGS (3)
  1. CONCERTA [Suspect]
     Indication: DRUG USE FOR UNKNOWN INDICATION
     Route: 048
     Dates: start: 20090101
  2. ALLERGY MEDICATION [Concomitant]
     Route: 065
  3. ALL OTHER THERAPEUTIC PRODUCTS [Concomitant]
     Route: 065

REACTIONS (4)
  - AGGRESSION [None]
  - DYSKINESIA [None]
  - INTENTIONAL SELF-INJURY [None]
  - NERVOUSNESS [None]
